FAERS Safety Report 19304258 (Version 1)
Quarter: 2021Q2

REPORT INFORMATION
  Report Type: Spontaneous
  Country: CN (occurrence: CN)
  Receive Date: 20210525
  Receipt Date: 20210525
  Transmission Date: 20210717
  Serious: Yes (Other)
  Sender: FDA-Public Use
  Company Number: CN-PFIZER INC-2021550137

PATIENT
  Age: 33 Year
  Sex: Male

DRUGS (1)
  1. DOXAZOSIN MESILATE [Suspect]
     Active Substance: DOXAZOSIN MESYLATE
     Indication: HYPERTENSION
     Dosage: 4.0 MG, 1X/DAY
     Route: 048
     Dates: start: 20210510, end: 20210511

REACTIONS (2)
  - Dizziness [Recovering/Resolving]
  - Amaurosis [Unknown]

NARRATIVE: CASE EVENT DATE: 20210511
